FAERS Safety Report 16157554 (Version 7)
Quarter: 2023Q2

REPORT INFORMATION
  Report Type: Spontaneous
  Country: US (occurrence: US)
  Receive Date: 20190404
  Receipt Date: 20230406
  Transmission Date: 20230721
  Serious: No
  Sender: FDA-Public Use
  Company Number: US-PFIZER INC-2019142648

PATIENT
  Age: 75 Year
  Sex: Female
  Weight: 63.492 kg

DRUGS (2)
  1. XELJANZ XR [Suspect]
     Active Substance: TOFACITINIB CITRATE
     Indication: Rheumatoid arthritis
     Dosage: 11 MG, 1X/DAY
     Dates: end: 202302
  2. SULFASALAZINE [Suspect]
     Active Substance: SULFASALAZINE
     Dosage: UNK
     Dates: start: 2005

REACTIONS (7)
  - Drug ineffective [Unknown]
  - Nasopharyngitis [Unknown]
  - Insomnia [Unknown]
  - Illness [Unknown]
  - COVID-19 [Unknown]
  - Pain in extremity [Unknown]
  - Back pain [Unknown]

NARRATIVE: CASE EVENT DATE: 20220101
